FAERS Safety Report 11637794 (Version 2)
Quarter: 2015Q4

REPORT INFORMATION
  Report Type: Spontaneous
  Country: US (occurrence: US)
  Receive Date: 20151016
  Receipt Date: 20151117
  Transmission Date: 20160304
  Serious: Yes (Disabling)
  Sender: FDA-Public Use
  Company Number: US-SHIRE-US201512654

PATIENT
  Age: 14 Year
  Sex: Female
  Weight: 52.15 kg

DRUGS (1)
  1. VYVANSE [Suspect]
     Active Substance: LISDEXAMFETAMINE DIMESYLATE
     Indication: ATTENTION DEFICIT/HYPERACTIVITY DISORDER
     Dosage: 40 MG, ONE DOSE
     Route: 048
     Dates: start: 20151002, end: 20151002

REACTIONS (6)
  - Thinking abnormal [Recovered/Resolved]
  - Abnormal behaviour [Recovered/Resolved]
  - Logorrhoea [Recovered/Resolved]
  - Euphoric mood [Recovered/Resolved]
  - Impulsive behaviour [Recovered/Resolved]
  - Mania [Recovered/Resolved]

NARRATIVE: CASE EVENT DATE: 20151002
